FAERS Safety Report 8055200-9 (Version None)
Quarter: 2011Q4

REPORT INFORMATION
  Report Type: 
  Country: None (occurrence: None)
  Receive Date: 20111213
  Receipt Date: 20110831
  Transmission Date: 20120403
  Serious: No
  Sender: FDA-Public Use
  Company Number: 2011SP041253

PATIENT
  Age: 40 Year
  Sex: Female

DRUGS (4)
  1. ELAVIL [Concomitant]
  2. XANAX [Concomitant]
  3. LYRICA [Concomitant]
  4. SAPHRIS [Suspect]
     Indication: AGITATION
     Dosage: 5 MG; QD; SL, 2.5 MG; QD; SL
     Route: 060
     Dates: start: 20110701

REACTIONS (3)
  - GALACTORRHOEA [None]
  - INAPPROPRIATE SCHEDULE OF DRUG ADMINISTRATION [None]
  - UNDERDOSE [None]
